FAERS Safety Report 12762857 (Version 1)
Quarter: 2016Q3

REPORT INFORMATION
  Report Type: Spontaneous
  Country: US (occurrence: US)
  Receive Date: 20160915
  Receipt Date: 20160915
  Transmission Date: 20161109
  Serious: Yes (Hospitalization)
  Sender: FDA-Public Use
  Company Number: None

PATIENT
  Age: 69 Year
  Sex: Female

DRUGS (1)
  1. TASIGNA [Suspect]
     Active Substance: NILOTINIB
     Indication: MYELOID LEUKAEMIA
     Route: 048
     Dates: start: 20160604, end: 20160803

REACTIONS (4)
  - Hyperglycaemia [None]
  - Full blood count abnormal [None]
  - Hypertension [None]
  - Upper respiratory tract infection [None]

NARRATIVE: CASE EVENT DATE: 20160803
